FAERS Safety Report 10357823 (Version 2)
Quarter: 2014Q3

REPORT INFORMATION
  Report Type: Spontaneous
  Country: US (occurrence: US)
  Receive Date: 20140801
  Receipt Date: 20140807
  Transmission Date: 20150326
  Serious: No
  Sender: FDA-Public Use
  Company Number: US-PFIZER INC-2014214044

PATIENT
  Age: 59 Year
  Sex: Female
  Weight: 79.37 kg

DRUGS (3)
  1. IBUPROFEN. [Suspect]
     Active Substance: IBUPROFEN
     Indication: ARTHROPATHY
  2. CENTRUM SILVER WOMEN^S 50+ [Suspect]
     Active Substance: VITAMINS
     Dosage: UNK, DAILY
     Dates: start: 201407, end: 20140727
  3. IBUPROFEN. [Suspect]
     Active Substance: IBUPROFEN
     Indication: ARTHRALGIA
     Dosage: 250 MG, AS NEEDED

REACTIONS (5)
  - Feeling abnormal [Unknown]
  - Intentional product misuse [Unknown]
  - Dizziness [Unknown]
  - Impaired work ability [Unknown]
  - Nausea [Unknown]

NARRATIVE: CASE EVENT DATE: 20140724
